FAERS Safety Report 19043517 (Version 1)
Quarter: 2021Q1

REPORT INFORMATION
  Report Type: Spontaneous
  Country: US (occurrence: US)
  Receive Date: 20210323
  Receipt Date: 20210323
  Transmission Date: 20210420
  Serious: Yes (Other)
  Sender: FDA-Public Use
  Company Number: None

PATIENT
  Age: 75 Year
  Sex: Male
  Weight: 75.75 kg

DRUGS (5)
  1. WARFARIN [Concomitant]
     Active Substance: WARFARIN
  2. LIPITOR [Concomitant]
     Active Substance: ATORVASTATIN CALCIUM
  3. DORZOLAMIDE/TIMOLOL EYEDROPS [Suspect]
     Active Substance: DORZOLAMIDE\TIMOLOL
     Indication: GLAUCOMA
     Route: 047
     Dates: start: 20210301
  4. LATANOPROST EYEDROPS [Suspect]
     Active Substance: LATANOPROST
     Indication: GLAUCOMA
     Dates: start: 20210301
  5. AMIODARONE [Concomitant]
     Active Substance: AMIODARONE

REACTIONS (2)
  - Dizziness [None]
  - Product use complaint [None]

NARRATIVE: CASE EVENT DATE: 20210301
